FAERS Safety Report 6034727-5 (Version None)
Quarter: 2009Q1

REPORT INFORMATION
  Report Type: 
  Country: None (occurrence: None)
  Receive Date: 20090112
  Receipt Date: 20090105
  Transmission Date: 20090719
  Serious: Yes (Other)
  Sender: FDA-Public Use
  Company Number: US-ASTRAZENECA-2009UW00342

PATIENT
  Age: 78 Year
  Sex: Female
  Weight: 60.8 kg

DRUGS (3)
  1. SEROQUEL [Suspect]
     Dosage: PUT ON SEROQUEL 25 MG SOMETIME AGO
     Route: 048
  2. GABAPENTIN [Concomitant]
     Dosage: 100 MG INITIATED SOMETIME AGO (SAME DAY AS SEROQUEL AND CELEBREX)
  3. CELEBREX [Concomitant]
     Dosage: INITIATED SOMETIME AGO (SAME DAY AS SEROQUEL AND GABAPENTIN)

REACTIONS (6)
  - CONVULSION [None]
  - DEAFNESS [None]
  - FACE INJURY [None]
  - LOSS OF CONSCIOUSNESS [None]
  - POLLAKIURIA [None]
  - SOMNOLENCE [None]
